FAERS Safety Report 10613400 (Version 1)
Quarter: 2014Q4

REPORT INFORMATION
  Report Type: Report from Study
  Country: CA (occurrence: CA)
  Receive Date: 20141128
  Receipt Date: 20141128
  Transmission Date: 20150529
  Serious: Yes (Other)
  Sender: FDA-Public Use
  Company Number: CA-JNJFOC-20141114189

PATIENT
  Sex: Female
  Weight: 64 kg

DRUGS (1)
  1. REMICADE [Suspect]
     Active Substance: INFLIXIMAB
     Indication: PSORIATIC ARTHROPATHY
     Route: 042
     Dates: start: 200901, end: 201409

REACTIONS (5)
  - Psoriatic arthropathy [Unknown]
  - Weight decreased [Unknown]
  - Deformity [Unknown]
  - Alopecia [Unknown]
  - Drug effect decreased [Unknown]
